FAERS Safety Report 21159043 (Version 2)
Quarter: 2022Q3

REPORT INFORMATION
  Report Type: Report from Study
  Country: US (occurrence: US)
  Receive Date: 20220802
  Receipt Date: 20220805
  Transmission Date: 20221027
  Serious: No
  Sender: FDA-Public Use
  Company Number: US-NOVARTISTESTPH-NVSC2022US173784

PATIENT
  Sex: Female

DRUGS (1)
  1. KESIMPTA [Suspect]
     Active Substance: OFATUMUMAB
     Indication: Multiple sclerosis
     Dosage: 20 MG, (ONCE A WEEK FOR 3 WEEKS WITH A WEEK BREAK, THEN ONCE A MONTH THEREAFTER)
     Route: 058
     Dates: start: 20220722

REACTIONS (5)
  - Device issue [Unknown]
  - Needle issue [Unknown]
  - Device delivery system issue [Unknown]
  - Injection site extravasation [Unknown]
  - Incorrect dose administered [Unknown]
